FAERS Safety Report 24030303 (Version 2)
Quarter: 2024Q3

REPORT INFORMATION
  Report Type: Spontaneous
  Country: US (occurrence: US)
  Receive Date: 20240628
  Receipt Date: 20240701
  Transmission Date: 20241017
  Serious: No
  Sender: SANDOZ
  Company Number: US-SANDOZ-SDZ2024US061540

PATIENT
  Sex: Female

DRUGS (1)
  1. VIVELLE-DOT [Suspect]
     Active Substance: ESTRADIOL
     Indication: Product used for unknown indication
     Dosage: 0.25 MG, BIW
     Route: 065
     Dates: start: 2023

REACTIONS (3)
  - Migraine [Unknown]
  - Product dose omission issue [Unknown]
  - Product availability issue [Unknown]
